FAERS Safety Report 24304637 (Version 2)
Quarter: 2024Q3

REPORT INFORMATION
  Report Type: Spontaneous
  Country: JP (occurrence: JP)
  Receive Date: 20240910
  Receipt Date: 20240923
  Transmission Date: 20241017
  Serious: Yes (Hospitalization, Other)
  Sender: SETON
  Company Number: JP-SETONPHARMA-2024SETSPO00005

PATIENT
  Age: 54 Year
  Sex: Male
  Weight: 74.5 kg

DRUGS (20)
  1. PREDNISOLONE [Suspect]
     Active Substance: PREDNISOLONE
     Indication: Takayasu^s arteritis
     Route: 048
     Dates: start: 20200623, end: 20200720
  2. PREDNISOLONE [Suspect]
     Active Substance: PREDNISOLONE
     Dosage: DOSE IS TAMPERING
     Route: 048
     Dates: start: 20200721
  3. PREDNISOLONE [Suspect]
     Active Substance: PREDNISOLONE
     Route: 048
     Dates: start: 20201112, end: 20240811
  4. PREDNISOLONE [Suspect]
     Active Substance: PREDNISOLONE
     Route: 048
     Dates: start: 20240821
  5. UPADACITINIB [Suspect]
     Active Substance: UPADACITINIB
     Indication: Takayasu^s arteritis
     Route: 048
     Dates: start: 20200623, end: 20240805
  6. UPADACITINIB [Suspect]
     Active Substance: UPADACITINIB
     Dates: start: 20240824
  7. AMLODIPINE [Concomitant]
     Active Substance: AMLODIPINE BESYLATE
     Indication: Hypertension
     Dates: start: 20200430, end: 20240812
  8. ALENDRONATE [Concomitant]
     Active Substance: ALENDRONATE SODIUM
     Dates: start: 20200525
  9. SULFAMETHOXAZOLE\TRIMETHOPRIM [Concomitant]
     Active Substance: SULFAMETHOXAZOLE\TRIMETHOPRIM
     Dosage: 0.5 DOSAGE FORM
     Dates: start: 20200915
  10. ALFACALCIDOL [Concomitant]
     Active Substance: ALFACALCIDOL
     Dates: start: 20220106
  11. BETAMETHASONE VALERATE [Concomitant]
     Active Substance: BETAMETHASONE VALERATE
     Indication: Eczema
     Dosage: 1 APPLICATION
     Dates: start: 20220524
  12. SODIUM FERROUS CITRATE [Concomitant]
     Active Substance: SODIUM FERROUS CITRATE
     Indication: Iron deficiency anaemia
     Dates: start: 20221110, end: 20240715
  13. SODIUM FERROUS CITRATE [Concomitant]
     Active Substance: SODIUM FERROUS CITRATE
     Dates: start: 20240716
  14. VONOPRAZAN FUMARATE [Concomitant]
     Active Substance: VONOPRAZAN FUMARATE
     Indication: Gastrooesophageal reflux disease
     Dates: start: 20230120, end: 20240811
  15. PETROLATUM [Concomitant]
     Active Substance: PETROLATUM
     Dosage: 1 APPLICATION
     Dates: start: 20230508
  16. ROSUVASTATIN CALCIUM [Concomitant]
     Active Substance: ROSUVASTATIN CALCIUM
     Indication: Dyslipidaemia
     Dates: start: 20231205
  17. CALONAL [Concomitant]
     Active Substance: ACETAMINOPHEN
     Dates: start: 20240803, end: 20240804
  18. BUFFERIN PREMIUM [Concomitant]
     Dosage: 2 DOSAGE FORMS
     Dates: start: 20240804, end: 20240804
  19. DEXTROMETHORPHAN HYDROBROMIDE [Concomitant]
     Active Substance: DEXTROMETHORPHAN HYDROBROMIDE
     Dates: start: 20240805, end: 20240811
  20. CHLORPHENIRAMINE MALEATE [Concomitant]
     Active Substance: CHLORPHENIRAMINE MALEATE
     Dates: start: 20240805, end: 20240811

REACTIONS (1)
  - COVID-19 pneumonia [Recovered/Resolved]

NARRATIVE: CASE EVENT DATE: 20240811
